FAERS Safety Report 20109788 (Version 9)
Quarter: 2022Q1

REPORT INFORMATION
  Report Type: Report from Study
  Country: DE (occurrence: DE)
  Receive Date: 20211124
  Receipt Date: 20220214
  Transmission Date: 20220423
  Serious: Yes (Hospitalization)
  Sender: FDA-Public Use
  Company Number: DE-CELGENE-DEU-20211106562

PATIENT
  Age: 54 Year
  Sex: Male
  Weight: 64 kg

DRUGS (41)
  1. ABRAXANE [Suspect]
     Active Substance: PACLITAXEL
     Indication: Lung squamous cell carcinoma metastatic
     Dosage: 169 MILLIGRAM
     Route: 041
     Dates: start: 20211014, end: 20211014
  2. ABRAXANE [Suspect]
     Active Substance: PACLITAXEL
     Indication: Squamous cell carcinoma of lung
     Dosage: 169 MILLIGRAM
     Route: 041
     Dates: start: 20211025, end: 20211025
  3. ABRAXANE [Suspect]
     Active Substance: PACLITAXEL
     Dosage: 499.74 MILLIGRAM
     Route: 041
     Dates: start: 20211114, end: 20211114
  4. PEMBROLIZUMAB [Suspect]
     Active Substance: PEMBROLIZUMAB
     Indication: Lung squamous cell carcinoma metastatic
     Dosage: 200 MILLIGRAM
     Route: 041
     Dates: start: 20211014, end: 20211025
  5. PEMBROLIZUMAB [Suspect]
     Active Substance: PEMBROLIZUMAB
     Indication: Squamous cell carcinoma of lung
  6. CARBOPLATIN [Suspect]
     Active Substance: CARBOPLATIN
     Indication: Squamous cell carcinoma of lung
     Dosage: AREA UNDER CURVE OF 6 MG/ML/MIN
     Route: 042
     Dates: start: 20211014, end: 20211014
  7. CARBOPLATIN [Suspect]
     Active Substance: CARBOPLATIN
     Indication: Non-small cell lung cancer metastatic
  8. RAMIPRIL [Concomitant]
     Active Substance: RAMIPRIL
     Indication: Hypertension
     Dosage: 20 MILLIGRAM
     Route: 048
     Dates: start: 202108
  9. RAMIPRIL [Concomitant]
     Active Substance: RAMIPRIL
     Dosage: 5 MILLIGRAM
     Route: 048
     Dates: start: 20211019, end: 20211110
  10. LERCANIDIPINE [Concomitant]
     Active Substance: LERCANIDIPINE
     Indication: Prophylaxis
     Dosage: 40 MILLIGRAM
     Route: 048
     Dates: start: 20210926, end: 20211020
  11. PANTOPRAZOLE [Concomitant]
     Active Substance: PANTOPRAZOLE
     Indication: Product used for unknown indication
     Dosage: 40 MILLIGRAM
     Route: 048
     Dates: start: 20211021
  12. PANTOPRAZOLE [Concomitant]
     Active Substance: PANTOPRAZOLE
     Indication: Sleep disorder
     Dosage: 5 MILLIGRAM
     Route: 048
     Dates: start: 202109
  13. ZOLPIDEM [Concomitant]
     Active Substance: ZOLPIDEM TARTRATE
     Indication: Sleep disorder
     Dosage: 7.5 MILLIGRAM
     Route: 048
     Dates: start: 202109
  14. MIRTAZAPINE [Concomitant]
     Active Substance: MIRTAZAPINE
     Indication: Pain
     Dosage: 5.2 MILLIGRAM
     Route: 048
     Dates: start: 20211007
  15. HYDROMORPHONE [Concomitant]
     Active Substance: HYDROMORPHONE
     Indication: Prophylaxis
     Route: 048
     Dates: start: 20211010
  16. HYDROMORPHONE [Concomitant]
     Active Substance: HYDROMORPHONE
     Indication: Pain
     Route: 048
     Dates: start: 20211013
  17. HYDROMORPHONE [Concomitant]
     Active Substance: HYDROMORPHONE
     Route: 058
     Dates: start: 20211011, end: 20211025
  18. POLYETHYLENE GLYCOLS [Concomitant]
     Active Substance: POLYETHYLENE GLYCOLS
     Indication: Pain
     Route: 048
     Dates: start: 20211011
  19. ENOXAPARIN SODIUM [Concomitant]
     Active Substance: ENOXAPARIN SODIUM
     Indication: Pain
     Dosage: 45 MILLIGRAM
     Route: 048
     Dates: start: 20211011
  20. ENOXAPARIN SODIUM [Concomitant]
     Active Substance: ENOXAPARIN SODIUM
     Indication: Prophylaxis
  21. PIRITRAMIDE [Concomitant]
     Active Substance: PIRITRAMIDE
     Indication: Pain
     Dosage: 45 MILLIGRAM
     Route: 048
     Dates: start: 20211014
  22. PREGABALIN [Concomitant]
     Active Substance: PREGABALIN
     Indication: Hypokalaemia
     Route: 048
     Dates: start: 20211014, end: 20211107
  23. PREGABALIN [Concomitant]
     Active Substance: PREGABALIN
     Indication: Pain
  24. POTASSIUM [Concomitant]
     Active Substance: POTASSIUM
     Indication: Prophylaxis
     Dosage: 8 MILLIGRAM
     Route: 048
     Dates: start: 20211015, end: 20211016
  25. DEXAMETHASONE [Concomitant]
     Active Substance: DEXAMETHASONE
     Indication: Anaemia
     Dosage: 1 BAG
     Route: 041
     Dates: start: 20211021, end: 20211021
  26. HUMAN RED BLOOD CELL [Concomitant]
     Active Substance: HUMAN RED BLOOD CELL
     Indication: Anaemia
     Route: 041
     Dates: start: 20211025, end: 20211025
  27. HUMAN RED BLOOD CELL [Concomitant]
     Active Substance: HUMAN RED BLOOD CELL
     Indication: Premedication
  28. GRANISETRON [Concomitant]
     Active Substance: GRANISETRON
     Indication: Tachyarrhythmia
     Route: 048
     Dates: start: 20211008
  29. BISOPROLOL [Concomitant]
     Active Substance: BISOPROLOL
     Indication: Hypertension
     Dosage: 5 MILLIGRAM
     Route: 048
     Dates: start: 20211011, end: 20211018
  30. TAZOBACTAM [Concomitant]
     Active Substance: TAZOBACTAM
     Indication: C-reactive protein
     Route: 065
  31. PIPERACILLIN [Concomitant]
     Active Substance: PIPERACILLIN
     Indication: C-reactive protein
     Route: 065
  32. MEROPENEM [Concomitant]
     Active Substance: MEROPENEM
     Indication: C-reactive protein
     Route: 065
  33. ONDANSETRON [Concomitant]
     Active Substance: ONDANSETRON
     Indication: Nausea
     Route: 065
  34. NALOXEGOL [Concomitant]
     Active Substance: NALOXEGOL
     Indication: Constipation
     Route: 065
  35. METAMIZOLE SODIUM [Concomitant]
     Active Substance: METAMIZOLE SODIUM
     Indication: Pain
     Dosage: 30 GTT DROPS, QID
     Route: 048
     Dates: start: 202110, end: 20211119
  36. BUTYLSCOPOLAMINE BROMIDE [Concomitant]
     Active Substance: BUTYLSCOPOLAMINE BROMIDE
     Indication: Abdominal pain
     Route: 048
  37. OCTREOTIDE [Concomitant]
     Active Substance: OCTREOTIDE
     Indication: Abdominal pain
     Route: 065
  38. METAMIZOLE [Concomitant]
     Active Substance: METAMIZOLE
     Indication: Palliative care
     Route: 048
  39. LORAZEPAM [Concomitant]
     Active Substance: LORAZEPAM
     Indication: Palliative care
     Route: 048
  40. MIDAZOLAM [Concomitant]
     Active Substance: MIDAZOLAM
     Indication: Palliative care
     Route: 048
  41. HALOPERIDOL [Concomitant]
     Active Substance: HALOPERIDOL
     Indication: Palliative care
     Route: 048

REACTIONS (2)
  - Chronic kidney disease [Not Recovered/Not Resolved]
  - Pleural effusion [Not Recovered/Not Resolved]

NARRATIVE: CASE EVENT DATE: 20211030
